FAERS Safety Report 8455412-6 (Version None)
Quarter: 2012Q2

REPORT INFORMATION
  Report Type: 
  Country: None (occurrence: None)
  Receive Date: 20120614
  Receipt Date: 20120530
  Transmission Date: 20120825
  Serious: Yes (Life-Threatening, Other)
  Sender: FDA-Public Use
  Company Number: 1303925

PATIENT
  Age: 83 Year
  Sex: Female
  Weight: 75.45 kg

DRUGS (11)
  1. OMEPRAZOLE [Concomitant]
  2. SODIUM CHLORIDE [Suspect]
     Indication: ANAEMIA
     Dosage: 250 ML, ONE DOSE,, INTRAVENOUS DRIP
     Route: 041
     Dates: start: 20120420, end: 20120420
  3. VENOFER [Suspect]
     Indication: ANAEMIA
     Dosage: 500 MG (25 ML), 1 DOSE,, INTRAVENOUS DRIP
     Route: 041
     Dates: start: 20120420, end: 20120420
  4. ASPIRIN [Concomitant]
  5. MAG OXIDE [Concomitant]
  6. BENICAR [Concomitant]
  7. FISH OIL [Concomitant]
  8. PREMARIN [Concomitant]
  9. TEGRETOL [Concomitant]
  10. OSTEO-BI-FLEX [Concomitant]
  11. CLONIDINE [Concomitant]

REACTIONS (14)
  - CARDIAC ARREST [None]
  - SOMNOLENCE [None]
  - OEDEMA PERIPHERAL [None]
  - BLOOD PRESSURE INCREASED [None]
  - BRADYCARDIA [None]
  - ALANINE AMINOTRANSFERASE INCREASED [None]
  - BLOOD ALKALINE PHOSPHATASE INCREASED [None]
  - RESPIRATION ABNORMAL [None]
  - FATIGUE [None]
  - UNRESPONSIVE TO STIMULI [None]
  - SINUS TACHYCARDIA [None]
  - PARAESTHESIA [None]
  - MUSCULOSKELETAL PAIN [None]
  - BLOOD GLUCOSE INCREASED [None]
